FAERS Safety Report 7790581-2 (Version None)
Quarter: 2011Q3

REPORT INFORMATION
  Report Type: 
  Country: None (occurrence: None)
  Receive Date: 20110930
  Receipt Date: 20110926
  Transmission Date: 20111222
  Serious: Yes (Death, Other)
  Sender: FDA-Public Use
  Company Number: PHHY2011GB36217

PATIENT
  Age: 54 Year
  Sex: Male

DRUGS (9)
  1. DAUNORUBICIN HCL [Suspect]
     Indication: ACUTE MYELOID LEUKAEMIA
     Dosage: UNK UKN, UNK
  2. AMSACRINE [Suspect]
     Indication: ACUTE MYELOID LEUKAEMIA
     Dosage: UNK UKN, UNK
  3. ETOPOSIDE [Suspect]
     Indication: ACUTE MYELOID LEUKAEMIA
     Dosage: UNK UKN, UNK
  4. MITOXANTRONE [Suspect]
     Indication: ACUTE MYELOID LEUKAEMIA
     Dosage: UNK UKN, UNK
  5. IDARUBICIN HCL [Suspect]
     Indication: ACUTE MYELOID LEUKAEMIA
     Dosage: UNK UKN, UNK
  6. CYTARABINE [Suspect]
     Dosage: 30 MG, UNK
  7. CYTARABINE [Suspect]
     Indication: ACUTE MYELOID LEUKAEMIA
     Dosage: UNK UKN, UNK
  8. HYDROCORTISONE [Suspect]
     Indication: ACUTE MYELOID LEUKAEMIA
     Dosage: UNK UKN, UNK
  9. METHOTREXATE [Suspect]
     Indication: ACUTE MYELOID LEUKAEMIA
     Dosage: 12.5 MG, UNK

REACTIONS (5)
  - NEUTROPENIA [None]
  - SEPTIC SHOCK [None]
  - PYREXIA [None]
  - FUNGAL INFECTION [None]
  - LEUKAEMIA RECURRENT [None]
